FAERS Safety Report 11193866 (Version 1)
Quarter: 2015Q2

REPORT INFORMATION
  Report Type: Spontaneous
  Country: US (occurrence: US)
  Receive Date: 20150616
  Receipt Date: 20150616
  Transmission Date: 20150821
  Serious: No
  Sender: FDA-Public Use
  Company Number: US-PFIZER INC-2015199137

PATIENT
  Age: 26 Year
  Sex: Male
  Weight: 102.4 kg

DRUGS (1)
  1. VIAGRA [Suspect]
     Active Substance: SILDENAFIL CITRATE
     Indication: ATTENTION DEFICIT/HYPERACTIVITY DISORDER
     Dosage: 100 MG, 2X/DAY
     Dates: start: 2014

REACTIONS (2)
  - Blood testosterone decreased [Unknown]
  - Off label use [Unknown]

NARRATIVE: CASE EVENT DATE: 2014
